FAERS Safety Report 9196355 (Version 1)
Quarter: 2013Q1

REPORT INFORMATION
  Report Type: Spontaneous
  Country: US (occurrence: None)
  Receive Date: 20130326
  Receipt Date: 20130326
  Transmission Date: 20140127
  Serious: Yes (Other)
  Sender: FDA-Public Use
  Company Number: 2013P1002649

PATIENT
  Age: 54 Year
  Sex: Female

DRUGS (18)
  1. ACETAZOLAMIDE [Concomitant]
  2. ACYCLOVIR [Concomitant]
  3. ENOXAPARIN [Concomitant]
  4. ETOMIDATE [Concomitant]
  5. FUROSEMIDE [Concomitant]
  6. IMIPENEM / CILASTATIN [Concomitant]
  7. DUNONEB [Concomitant]
  8. KETOROLAC [Concomitant]
  9. LINEZOLID [Concomitant]
  10. METOPROLOL [Concomitant]
  11. METRONIDAZOLE [Concomitant]
  12. PANTOPRAZOLE [Concomitant]
  13. PIP / TAZO [Concomitant]
  14. KCL [Concomitant]
  15. VANCOMYCIN [Concomitant]
  16. FENTANYL CITRATE [Suspect]
     Indication: ANALGESIC THERAPY
     Dosage: 50  MCG; QH; IV?02/08/2013  -  02/13/2013
     Route: 042
     Dates: start: 20130208, end: 20130213
  17. MIDAZOLAM [Suspect]
     Indication: SEDATION
     Dosage: ?02/08/2013  -  02/14/2013
     Dates: start: 20130208, end: 20130214
  18. APAP [Concomitant]

REACTIONS (4)
  - Pneumonia [None]
  - Sepsis [None]
  - Hyperpyrexia [None]
  - Product contamination [None]
